FAERS Safety Report 5228123-8 (Version None)
Quarter: 2007Q1

REPORT INFORMATION
  Report Type: 
  Country: None (occurrence: None)
  Receive Date: 20070130
  Receipt Date: 20061130
  Transmission Date: 20070707
  Serious: Yes (Death)
  Sender: FDA-Public Use
  Company Number: T200601568

PATIENT
  Age: 63 Year
  Sex: 0

DRUGS (3)
  1. HYDROCODONE/ACETAMINOPHEN(HYDROCODONE BITARTRATE, ACETAMINOPHEN) TABLE [Suspect]
  2. ACETAMINOPHEN/CODEINE TABLETS (ACETAMINOPHEN, CODEINE PHOSPHATE) TABLE [Suspect]
     Indication: DRUG USE FOR UNKNOWN INDICATION
  3. OLANZAPINE [Suspect]
     Indication: DRUG USE FOR UNKNOWN INDICATION

REACTIONS (1)
  - COMPLETED SUICIDE [None]
